FAERS Safety Report 8824760 (Version 1)
Quarter: 2012Q4

REPORT INFORMATION
  Report Type: 
  Country: DE (occurrence: DE)
  Receive Date: 20121004
  Receipt Date: 20121004
  Transmission Date: 20130627
  Serious: Yes (Hospitalization)
  Sender: FDA-Public Use
  Company Number: DE-ASTRAZENECA-2012SE74846

PATIENT
  Age: 2 Day
  Sex: Male
  Weight: 3.9 kg

DRUGS (2)
  1. SEROQUEL [Suspect]
     Indication: BIPOLAR I DISORDER
     Route: 064
  2. L-THYROXIN [Concomitant]
     Indication: HYPOTHYROIDISM
     Route: 064

REACTIONS (7)
  - Congenital limb hyperextension [Unknown]
  - Anaemia neonatal [Unknown]
  - Hypernatraemia [Unknown]
  - Hypotonia [Unknown]
  - Drug withdrawal syndrome neonatal [Unknown]
  - Extrapyramidal disorder [Unknown]
  - Vomiting [Unknown]
